FAERS Safety Report 5128352-8 (Version None)
Quarter: 2006Q4

REPORT INFORMATION
  Report Type: 
  Country: None (occurrence: None)
  Receive Date: 20061011
  Receipt Date: 20060929
  Transmission Date: 20070319
  Serious: Yes (Hospitalization)
  Sender: FDA-Public Use
  Company Number: S06-FRA-04185-01

PATIENT
  Sex: Male

DRUGS (5)
  1. SEROPLEX (ESCITALOPRAM) [Suspect]
     Indication: DEPRESSION
     Dosage: 10 MG QD PO
     Route: 048
  2. HEMIDIGOXINE (DIGOXIN) [Concomitant]
  3. PREVISCAN (FLUINDIONE) [Concomitant]
  4. RABEPRAZOLE SODIUM [Concomitant]
  5. MOTILIUM [Concomitant]

REACTIONS (2)
  - CONFUSIONAL STATE [None]
  - SPEECH DISORDER [None]
